FAERS Safety Report 20136159 (Version 1)
Quarter: 2021Q4

REPORT INFORMATION
  Report Type: Spontaneous
  Country: US (occurrence: None)
  Receive Date: 20211201
  Receipt Date: 20211201
  Transmission Date: 20220304
  Serious: Yes (Hospitalization)
  Sender: FDA-Public Use
  Company Number: None

PATIENT
  Age: 75 Year
  Sex: Male
  Weight: 97 kg

DRUGS (1)
  1. OMEPRAZOLE [Suspect]
     Active Substance: OMEPRAZOLE
     Indication: Gastrooesophageal reflux disease
     Dates: start: 20150731, end: 20191009

REACTIONS (9)
  - Asthenia [None]
  - Dyspnoea [None]
  - Orthostatic hypotension [None]
  - Acute kidney injury [None]
  - Anaemia [None]
  - Blood sodium increased [None]
  - Renal injury [None]
  - Tubulointerstitial nephritis [None]
  - Therapy cessation [None]

NARRATIVE: CASE EVENT DATE: 20191209
